FAERS Safety Report 4381179-7 (Version None)
Quarter: 2004Q2

REPORT INFORMATION
  Report Type: 
  Country: None (occurrence: None)
  Receive Date: 20040614
  Receipt Date: 20040601
  Transmission Date: 20050107
  Serious: No
  Sender: FDA-Public Use
  Company Number: 02100-JPN-04-0147

PATIENT
  Age: 96 Year
  Sex: Male

DRUGS (1)
  1. CILOSTAZOL [Suspect]
     Indication: ATHEROSCLEROSIS OBLITERANS
     Dosage: 200 MG, ORAL
     Route: 048
     Dates: start: 20040514, end: 20040516

REACTIONS (2)
  - ANURIA [None]
  - PAIN IN EXTREMITY [None]
